FAERS Safety Report 9292198 (Version 3)
Quarter: 2013Q2

REPORT INFORMATION
  Report Type: Spontaneous
  Country: JP (occurrence: JP)
  Receive Date: 20130516
  Receipt Date: 20130627
  Transmission Date: 20140414
  Serious: Yes (Death, Hospitalization)
  Sender: FDA-Public Use
  Company Number: JP-BAYER-2013-020398

PATIENT
  Age: 76 Year
  Sex: Female
  Weight: 44 kg

DRUGS (15)
  1. NEXAVAR [Suspect]
     Indication: HEPATOCELLULAR CARCINOMA
     Dosage: 400MG
     Route: 048
     Dates: start: 20130110, end: 20130116
  2. NEXAVAR [Suspect]
     Indication: HEPATOCELLULAR CARCINOMA
     Dosage: 200MG
     Route: 048
     Dates: start: 20130117, end: 20130130
  3. THYRADIN S [Concomitant]
     Indication: HYPOTHYROIDISM
     Dosage: DAILY DOSE 25 ?G
     Route: 048
     Dates: start: 20121122, end: 20130130
  4. THYRADIN S [Concomitant]
     Indication: HYPOTHYROIDISM
     Dosage: DAILY DOSE 12.5 ?G
     Route: 048
     Dates: start: 20121220, end: 20130130
  5. RABEPRAZOLE SODIUM [Concomitant]
     Indication: GASTROOESOPHAGEAL REFLUX DISEASE
     Dosage: DAILY DOSE 10 MG
     Route: 048
     Dates: start: 20121122, end: 20130130
  6. ALDACTONE A [Concomitant]
     Indication: PLEURAL EFFUSION
     Dosage: DAILY DOSE 50 MG
     Route: 048
     Dates: start: 20120912, end: 20130130
  7. LASIX [Concomitant]
     Indication: PLEURAL EFFUSION
     Dosage: DAILY DOSE 20 MG
     Route: 048
     Dates: start: 20120919, end: 20130130
  8. MAGLAX [Concomitant]
     Indication: CONSTIPATION
     Dosage: DAILY DOSE 500 MG
     Route: 048
     Dates: start: 20120912, end: 20130130
  9. LIVACT [Concomitant]
     Indication: HYPOALBUMINAEMIA
     Dosage: DAILY DOSE 12.45 G
     Route: 048
     Dates: start: 20120919, end: 20130130
  10. WARFARIN [Concomitant]
     Indication: VENOUS THROMBOSIS
     Dosage: DAILY DOSE .5 MG
     Route: 048
     Dates: start: 20121128, end: 20130130
  11. AMLODIPINE [Concomitant]
     Dosage: 2.500 MG, DAILY
     Route: 048
     Dates: end: 20121130
  12. NORVASC [Concomitant]
     Dosage: 5 MG, DAILY
     Route: 048
     Dates: end: 20121130
  13. ARTIST [Concomitant]
     Dosage: DAILY DOSE 5 MG
     Route: 048
     Dates: end: 20121130
  14. RABEPRAZOLE [Concomitant]
     Indication: GASTROOESOPHAGEAL REFLUX DISEASE
     Dosage: DAILY DOSE 10 MG
     Route: 048
     Dates: start: 20121122, end: 20130130
  15. BETAMAC [SULPIRIDE] [Concomitant]
     Indication: DEPRESSION
     Dosage: 150 MG, DAILY
     Route: 048
     Dates: start: 20120820, end: 20130130

REACTIONS (8)
  - Hepatorenal syndrome [Fatal]
  - Renal disorder [Fatal]
  - Hepatocellular carcinoma [Fatal]
  - Jaundice [Fatal]
  - Depressed level of consciousness [None]
  - Haematemesis [None]
  - Hypoglycaemia [Recovered/Resolved]
  - Depressed level of consciousness [Recovered/Resolved]
